FAERS Safety Report 7493295-1 (Version None)
Quarter: 2011Q2

REPORT INFORMATION
  Report Type: 
  Country: None (occurrence: None)
  Receive Date: 20110520
  Receipt Date: 20080808
  Transmission Date: 20111010
  Serious: Yes (Death, Hospitalization)
  Sender: FDA-Public Use
  Company Number: US-BAYER-200830449NA

PATIENT
  Age: 59 Year
  Sex: Male
  Weight: 68 kg

DRUGS (8)
  1. WARFARIN SODIUM [Concomitant]
     Dosage: 5 MG DAY
     Route: 048
  2. ACETYLSALICYLIC ACID SRT [Concomitant]
     Dosage: 1 DAILY
     Route: 048
     Dates: start: 20030513
  3. HEPARIN [Concomitant]
     Dosage: UNK
     Route: 042
     Dates: start: 20030918, end: 20030918
  4. TRASYLOL [Suspect]
     Indication: AORTIC VALVE REPLACEMENT
     Dosage: 200 ML, ONCE, LOADING DOSE
     Route: 042
     Dates: start: 20030918, end: 20030918
  5. HEPARIN [Concomitant]
     Dosage: 1,000 UNITS PER HOUR
     Dates: start: 20030908
  6. WARFARIN SODIUM [Concomitant]
     Dosage: 5 MG DAILY
     Route: 048
     Dates: start: 20030907, end: 20030908
  7. NITROGLYCERIN [Concomitant]
     Dosage: 0.2 MG/HOUR
     Route: 061
     Dates: start: 20030513
  8. SPIRONOLACTONE AND HYDROCHLOROTHIAZIDE [Concomitant]
     Dosage: ? TABLET DAILY
     Route: 048
     Dates: start: 20030513

REACTIONS (8)
  - NERVOUSNESS [None]
  - INJURY [None]
  - RENAL FAILURE [None]
  - CARDIAC FAILURE [None]
  - ANXIETY [None]
  - MYOCARDIAL INFARCTION [None]
  - EMOTIONAL DISTRESS [None]
  - DEPRESSION [None]
